FAERS Safety Report 11655862 (Version 3)
Quarter: 2016Q3

REPORT INFORMATION
  Report Type: Report from Study
  Country: US (occurrence: US)
  Receive Date: 20151023
  Receipt Date: 20160726
  Transmission Date: 20161109
  Serious: Yes (Other)
  Sender: FDA-Public Use
  Company Number: US-AMGEN-USASL2015101643

PATIENT
  Age: 72 Year
  Sex: Male

DRUGS (2)
  1. KYPROLIS [Suspect]
     Active Substance: CARFILZOMIB
     Indication: PLASMA CELL MYELOMA
     Dosage: UNK, QWK
     Route: 042
     Dates: start: 201508, end: 20160114
  2. REVLIMID [Suspect]
     Active Substance: LENALIDOMIDE
     Indication: PLASMA CELL MYELOMA
     Dosage: UNK
     Route: 065
     Dates: start: 2015

REACTIONS (14)
  - Neuropathy peripheral [Unknown]
  - Muscle spasms [Not Recovered/Not Resolved]
  - Activities of daily living impaired [Not Recovered/Not Resolved]
  - Central venous catheterisation [Unknown]
  - Thinking abnormal [Unknown]
  - Visual impairment [Unknown]
  - Echocardiogram abnormal [Unknown]
  - Cognitive disorder [Not Recovered/Not Resolved]
  - Vein disorder [Unknown]
  - Nausea [Unknown]
  - Hot flush [Unknown]
  - Head discomfort [Unknown]
  - Toothache [Unknown]
  - Dizziness [Not Recovered/Not Resolved]

NARRATIVE: CASE EVENT DATE: 2015
